FAERS Safety Report 9862767 (Version 1)
Quarter: 2014Q1

REPORT INFORMATION
  Report Type: Spontaneous
  Country: US (occurrence: None)
  Receive Date: 20140131
  Receipt Date: 20140131
  Transmission Date: 20141002
  Serious: No
  Sender: FDA-Public Use
  Company Number: None

PATIENT
  Age: 61 Year
  Sex: Female
  Weight: 69.1 kg

DRUGS (3)
  1. PANTOPRAZOLE [Suspect]
     Indication: GASTROOESOPHAGEAL REFLUX DISEASE
     Route: 048
     Dates: start: 20131227
  2. PANTOPRAZOLE [Suspect]
     Indication: BARRETT^S OESOPHAGUS
     Route: 048
     Dates: start: 20131227
  3. PANTOPRAZOLE [Suspect]
     Indication: OESOPHAGEAL DYSPLASIA
     Route: 048
     Dates: start: 20131227

REACTIONS (4)
  - Back pain [None]
  - Muscle spasms [None]
  - Barrett^s oesophagus [None]
  - Oesophageal dysplasia [None]
